FAERS Safety Report 25378697 (Version 1)
Quarter: 2025Q2

REPORT INFORMATION
  Report Type: Spontaneous
  Country: US (occurrence: US)
  Receive Date: 20250530
  Receipt Date: 20250530
  Transmission Date: 20250717
  Serious: No
  Sender: Hibrow Healthcare
  Company Number: US-Hibrow Healthcare Private Ltd-2177798

PATIENT
  Age: 10 Year
  Sex: Male

DRUGS (1)
  1. VALPROIC ACID [Suspect]
     Active Substance: VALPROIC ACID
     Indication: Seizure

REACTIONS (2)
  - Feeling abnormal [Unknown]
  - Lethargy [Unknown]
